FAERS Safety Report 4886004-3 (Version None)
Quarter: 2006Q1

REPORT INFORMATION
  Report Type: 
  Country: None (occurrence: None)
  Receive Date: 20060117
  Receipt Date: 20060105
  Transmission Date: 20060701
  Serious: Yes (Other)
  Sender: FDA-Public Use
  Company Number: 2005-09-1291

PATIENT
  Age: 53 Year
  Sex: Male

DRUGS (2)
  1. PEG-INTRON [Suspect]
     Indication: HEPATITIS C
     Dosage: SUBCUTANEOUS
     Route: 058
     Dates: start: 20050511, end: 20050731
  2. REBETOL [Suspect]
     Indication: HEPATITIS C
     Dosage: ORAL
     Route: 048
     Dates: start: 20050511, end: 20050810

REACTIONS (5)
  - HAEMANGIOMA [None]
  - LYMPHOMA [None]
  - NEUTROPENIA [None]
  - OEDEMA PERIPHERAL [None]
  - PLATELET COUNT DECREASED [None]
